APPROVED DRUG PRODUCT: ZINECARD
Active Ingredient: DEXRAZOXANE HYDROCHLORIDE
Strength: EQ 250MG BASE/VIAL **Federal Register determination that product was not discontinued or withdrawn for safety or effectiveness reasons**
Dosage Form/Route: INJECTABLE;INJECTION
Application: N020212 | Product #001
Applicant: PFIZER INC
Approved: May 26, 1995 | RLD: Yes | RS: No | Type: DISCN